FAERS Safety Report 22772297 (Version 6)
Quarter: 2023Q4

REPORT INFORMATION
  Report Type: Report from Study
  Country: MX (occurrence: MX)
  Receive Date: 20230801
  Receipt Date: 20231104
  Transmission Date: 20240110
  Serious: Yes (Other)
  Sender: FDA-Public Use
  Company Number: MX-002147023-NVSC2021MX182520

PATIENT
  Age: 20 Year
  Sex: Female
  Weight: 52 kg

DRUGS (2)
  1. TASIGNA [Suspect]
     Active Substance: NILOTINIB
     Indication: Chronic myeloid leukaemia
     Dosage: 800 MG, QD
     Route: 048
     Dates: start: 20170511
  2. TASIGNA [Suspect]
     Active Substance: NILOTINIB
     Dosage: UNK
     Route: 048

REACTIONS (28)
  - Haemarthrosis [Unknown]
  - Arthralgia [Unknown]
  - Arthritis [Unknown]
  - Joint swelling [Unknown]
  - Influenza [Recovering/Resolving]
  - Disturbance in attention [Unknown]
  - Cough [Recovering/Resolving]
  - Nasopharyngitis [Recovering/Resolving]
  - Anger [Unknown]
  - White blood cell disorder [Unknown]
  - Crying [Unknown]
  - Stress [Unknown]
  - Nervousness [Recovering/Resolving]
  - Feeling abnormal [Unknown]
  - Poor peripheral circulation [Unknown]
  - Tissue injury [Unknown]
  - Feeling of despair [Unknown]
  - Pain in extremity [Unknown]
  - Inflammation [Unknown]
  - Mobility decreased [Unknown]
  - Decreased activity [Unknown]
  - Salivary gland disorder [Unknown]
  - Speech disorder [Unknown]
  - Fear [Unknown]
  - Malaise [Unknown]
  - Headache [Unknown]
  - Alopecia [Unknown]
  - Inappropriate schedule of product administration [Unknown]

NARRATIVE: CASE EVENT DATE: 20170511
